FAERS Safety Report 8823031 (Version 2)
Quarter: 2015Q2

REPORT INFORMATION
  Report Type: Report from Study
  Country: US (occurrence: US)
  Receive Date: 20121003
  Receipt Date: 20150626
  Transmission Date: 20150821
  Serious: Yes (Death)
  Sender: FDA-Public Use
  Company Number: US-ROCHE-1131469

PATIENT
  Age: 46 Year
  Sex: Male

DRUGS (3)
  1. RITUXAN [Suspect]
     Active Substance: RITUXIMAB
     Indication: CHRONIC LYMPHOCYTIC LEUKAEMIA
     Dosage: OVER 6 HOURS.
     Route: 042
     Dates: start: 20070212
  2. VINCRISTINE [Concomitant]
     Active Substance: VINCRISTINE
     Route: 042
  3. ELOXATIN [Concomitant]
     Active Substance: OXALIPLATIN

REACTIONS (2)
  - Off label use [Unknown]
  - Death [Fatal]

NARRATIVE: CASE EVENT DATE: 20070401
